FAERS Safety Report 8500887-7 (Version None)
Quarter: 2012Q3

REPORT INFORMATION
  Report Type: 
  Country: None (occurrence: None)
  Receive Date: 20120710
  Receipt Date: 20120705
  Transmission Date: 20120928
  Serious: Yes (Hospitalization, Other)
  Sender: FDA-Public Use
  Company Number: PHFR2011GB03820

PATIENT
  Sex: Female
  Weight: 55 kg

DRUGS (6)
  1. CLOZARIL [Suspect]
     Indication: SCHIZOPHRENIA
     Dosage: 500 MG/DAY
     Route: 048
     Dates: start: 20011119, end: 20110601
  2. CLOZARIL [Suspect]
     Dosage: UNK UKN, UNK
     Route: 048
     Dates: start: 20120427, end: 20120620
  3. DIAZEPAM [Concomitant]
     Indication: ANXIETY
     Dosage: 4 MG/DAY
     Route: 048
     Dates: start: 20020101
  4. LITHIUM CARBONATE [Concomitant]
     Dosage: 400 MG AT NIGHT, UNK
  5. CITALOPRAM HYDROBROMIDE [Concomitant]
     Indication: DEPRESSION
     Dosage: 10 MG/DAY
     Route: 048
     Dates: start: 20080101
  6. ANTIPSYCHOTICS [Concomitant]
     Indication: MENTAL IMPAIRMENT

REACTIONS (4)
  - MENTAL IMPAIRMENT [None]
  - AGITATION [None]
  - NEUTROPHIL COUNT DECREASED [None]
  - WHITE BLOOD CELL COUNT DECREASED [None]
